FAERS Safety Report 15685092 (Version 1)
Quarter: 2018Q4

REPORT INFORMATION
  Report Type: Other
  Country: PT (occurrence: PT)
  Receive Date: 20181204
  Receipt Date: 20181204
  Transmission Date: 20190205
  Serious: Yes (Life-Threatening, Other)
  Sender: FDA-Public Use
  Company Number: PT-ASPEN-GLO2018PT012210

PATIENT
  Sex: Male
  Weight: .58 kg

DRUGS (6)
  1. AMIKACIN. [Suspect]
     Active Substance: AMIKACIN
     Indication: NECROTISING COLITIS
  2. VANCOMYCIN [Concomitant]
     Active Substance: VANCOMYCIN
     Indication: SEPSIS NEONATAL
     Route: 065
  3. METRONIDAZOLE. [Concomitant]
     Active Substance: METRONIDAZOLE
     Indication: NECROTISING COLITIS
     Route: 065
  4. CEFOTAXIME [Concomitant]
     Active Substance: CEFOTAXIME SODIUM
     Indication: SEPSIS NEONATAL
     Route: 065
  5. AMIKACIN. [Suspect]
     Active Substance: AMIKACIN
     Indication: SEPSIS NEONATAL
     Dosage: SYSTEMIC
     Route: 065
  6. DEXAMETHASONE. [Suspect]
     Active Substance: DEXAMETHASONE
     Indication: PRODUCT USED FOR UNKNOWN INDICATION
     Dosage: SYSTEMIC
     Route: 065

REACTIONS (1)
  - Drug ineffective [Unknown]
